FAERS Safety Report 6500891-4 (Version None)
Quarter: 2009Q4

REPORT INFORMATION
  Report Type: 
  Country: None (occurrence: None)
  Receive Date: 20091216
  Receipt Date: 20090408
  Transmission Date: 20100525
  Serious: No
  Sender: FDA-Public Use
  Company Number: A0777764A

PATIENT
  Age: 66 Year
  Sex: Male

DRUGS (1)
  1. COMMIT [Suspect]
     Dates: start: 20090406

REACTIONS (2)
  - DYSPEPSIA [None]
  - HICCUPS [None]
